FAERS Safety Report 13365114 (Version 1)
Quarter: 2017Q1

REPORT INFORMATION
  Report Type: Spontaneous
  Country: GB (occurrence: GB)
  Receive Date: 20170323
  Receipt Date: 20170323
  Transmission Date: 20170429
  Serious: Yes (Life-Threatening, Hospitalization, Other)
  Sender: FDA-Public Use
  Company Number: GB-MYLANLABS-2017M1017272

PATIENT

DRUGS (4)
  1. VENLAFAXINE [Suspect]
     Active Substance: VENLAFAXINE HYDROCHLORIDE
     Indication: DEPRESSION
     Dosage: 37.5 MG, BID
     Route: 048
     Dates: end: 20170222
  2. VENLAFAXINE [Suspect]
     Active Substance: VENLAFAXINE HYDROCHLORIDE
     Dosage: EACH MORNING
     Route: 048
     Dates: end: 20170223
  3. QUETIAPINE. [Suspect]
     Active Substance: QUETIAPINE
     Indication: DEPRESSION
     Dosage: AT NIGHT
     Route: 048
     Dates: end: 20170223
  4. NIQUITIN [Concomitant]
     Active Substance: NICOTINE
     Dosage: 14 MG, UNK

REACTIONS (6)
  - Hypothermia [Unknown]
  - Myoclonic epilepsy [Recovering/Resolving]
  - Dyspnoea [Unknown]
  - Incontinence [Unknown]
  - Condition aggravated [Unknown]
  - Pain in extremity [Unknown]

NARRATIVE: CASE EVENT DATE: 20170216
